FAERS Safety Report 4433202-9 (Version None)
Quarter: 2004Q3

REPORT INFORMATION
  Report Type: 
  Country: None (occurrence: None)
  Receive Date: 20040823
  Receipt Date: 20040811
  Transmission Date: 20050211
  Serious: Yes (Other)
  Sender: FDA-Public Use
  Company Number: HQWYE400523JUL04

PATIENT
  Age: 75 Year
  Sex: Female

DRUGS (2)
  1. CORDAREX            (AMIODARONE) [Suspect]
     Indication: ATRIAL FIBRILLATION
     Dosage: 150 MG DISSOLVED IN 10 ML NACL
     Route: 042
     Dates: start: 20040417, end: 20040417
  2. CORDAREX            (AMIODARONE) [Suspect]
     Indication: TACHYCARDIA
     Dosage: 150 MG DISSOLVED IN 10 ML NACL
     Route: 042
     Dates: start: 20040417, end: 20040417

REACTIONS (5)
  - APNOEA [None]
  - GROIN PAIN [None]
  - INFUSION RELATED REACTION [None]
  - LOSS OF CONSCIOUSNESS [None]
  - PROCTALGIA [None]
